FAERS Safety Report 10370106 (Version 4)
Quarter: 2014Q4

REPORT INFORMATION
  Report Type: Spontaneous
  Country: DK (occurrence: DK)
  Receive Date: 20140808
  Receipt Date: 20141224
  Transmission Date: 20150528
  Serious: Yes (Hospitalization, Other)
  Sender: FDA-Public Use
  Company Number: DK-ROCHE-1445705

PATIENT
  Age: 67 Year
  Sex: Male

DRUGS (9)
  1. MABTHERA [Suspect]
     Active Substance: RITUXIMAB
     Indication: CHRONIC LYMPHOCYTIC LEUKAEMIA
     Dosage: RECEIVED 7 SERIES
     Route: 042
     Dates: start: 20100819, end: 20110203
  2. FLUDARA [Suspect]
     Active Substance: FLUDARABINE PHOSPHATE
     Indication: CHRONIC LYMPHOCYTIC LEUKAEMIA
     Dosage: STYRKE: 10 MG; RECEIVED MOST RECENT DOSE : 31/OCT/2010; 2 SERIES WERE GIVEN.
     Route: 048
     Dates: start: 20100930, end: 20101031
  3. MABTHERA [Suspect]
     Active Substance: RITUXIMAB
     Dosage: RECEIVED 6 SERIES
     Route: 042
     Dates: start: 20110701, end: 20111123
  4. ADRIAMYCIN [Suspect]
     Active Substance: DOXORUBICIN HYDROCHLORIDE
     Indication: DIFFUSE LARGE B-CELL LYMPHOMA
     Dosage: FORM STRENGTH: 2 MG/ML, MOST RECENT DOSE ON 07/AUG/2013, RECEIVED 6 SERIES.
     Route: 042
     Dates: start: 20130424, end: 20130807
  5. ONCOVIN [Suspect]
     Active Substance: VINCRISTINE SULFATE
     Indication: DIFFUSE LARGE B-CELL LYMPHOMA
     Dosage: STYRKE: 1MG/ML; RECEIVED MOST RECENT DOSE ON 18/SEP/2013
     Route: 042
     Dates: start: 20130424
  6. LEVACT (DENMARK) [Suspect]
     Active Substance: BENDAMUSTINE HYDROCHLORIDE
     Indication: CHRONIC LYMPHOCYTIC LEUKAEMIA
     Dosage: FORM STRENGTH: 2.5 MG/ML, MOST RECENT DOSE ON 23/NOV/2011, RECEIVED 6 SERIES
     Route: 042
     Dates: start: 20110701, end: 20111123
  7. MABTHERA [Suspect]
     Active Substance: RITUXIMAB
     Dosage: RECEIVED 8 SERIES, RECEIVED MOST RECENT DOSE ON 18/SEP/2013
     Route: 042
     Dates: start: 20130424
  8. CAELYX [Suspect]
     Active Substance: DOXORUBICIN HYDROCHLORIDE
     Indication: CHRONIC LYMPHOCYTIC LEUKAEMIA
     Dosage: STYRKE: 2 MG/ML., RECEIVED MOST RECENT DOSE ON 18/SEP/2013
     Route: 042
     Dates: start: 20130828
  9. SENDOXAN [Suspect]
     Active Substance: CYCLOPHOSPHAMIDE
     Indication: CHRONIC LYMPHOCYTIC LEUKAEMIA
     Dosage: FORM STRENGTH: 50MG, MOST RECENT DOSE ON 03/FEB/2011, RECEIVED 7 SERIES
     Route: 048
     Dates: start: 20100819

REACTIONS (8)
  - Respiratory failure [Recovered/Resolved with Sequelae]
  - Left ventricular dysfunction [Recovered/Resolved]
  - Dyspnoea [Unknown]
  - Lung infiltration [Recovered/Resolved with Sequelae]
  - Atrial fibrillation [Recovered/Resolved]
  - Pleural effusion [Recovered/Resolved]
  - Cardiomyopathy [Not Recovered/Not Resolved]
  - Cardiac failure [Not Recovered/Not Resolved]

NARRATIVE: CASE EVENT DATE: 20111128
